FAERS Safety Report 5618181-0 (Version None)
Quarter: 2008Q1

REPORT INFORMATION
  Report Type: 
  Country: None (occurrence: None)
  Receive Date: 20080207
  Receipt Date: 20071120
  Transmission Date: 20080703
  Serious: No
  Sender: FDA-Public Use
  Company Number: A0695409A

PATIENT
  Age: 60 Year
  Sex: Female

DRUGS (5)
  1. PAXIL [Suspect]
     Indication: DEPRESSION
     Route: 048
     Dates: start: 20020101
  2. PAROXETINE [Suspect]
     Indication: DEPRESSION
     Route: 048
  3. OXYCODONE AND ACETAMINOPHEN [Concomitant]
  4. XANAX [Concomitant]
  5. HYDROCHLOROTHIAZIDE [Concomitant]

REACTIONS (1)
  - NERVOUSNESS [None]
